FAERS Safety Report 12768823 (Version 1)
Quarter: 2016Q3

REPORT INFORMATION
  Report Type: Spontaneous
  Country: RU (occurrence: RU)
  Receive Date: 20160921
  Receipt Date: 20160921
  Transmission Date: 20161109
  Serious: Yes (Other)
  Sender: FDA-Public Use
  Company Number: RU-BAYER-2016-182334

PATIENT
  Age: 27 Year
  Sex: Female

DRUGS (2)
  1. YAZ PLUS [Suspect]
     Active Substance: DROSPIRENONE\ETHINYL ESTRADIOL
     Indication: BLOOD PREGNENOLONE INCREASED
     Dosage: UNK
     Dates: start: 2016
  2. YARINA [Suspect]
     Active Substance: DROSPIRENONE\ETHINYL ESTRADIOL
     Indication: HORMONE LEVEL ABNORMAL
     Dosage: UNK
     Dates: start: 201603, end: 201606

REACTIONS (7)
  - Depressed mood [None]
  - Ovarian cyst [None]
  - Off label use [None]
  - Off label use [None]
  - Loss of consciousness [None]
  - Blood pregnenolone increased [None]
  - Tearfulness [None]

NARRATIVE: CASE EVENT DATE: 2016
